FAERS Safety Report 10046329 (Version 2)
Quarter: 2014Q2

REPORT INFORMATION
  Report Type: Spontaneous
  Country: FR (occurrence: FR)
  Receive Date: 20140331
  Receipt Date: 20140424
  Transmission Date: 20141212
  Serious: Yes (Hospitalization)
  Sender: FDA-Public Use
  Company Number: FR-009507513-1403FRA010403

PATIENT
  Age: 34 Year
  Sex: Female

DRUGS (4)
  1. GONADOTROPHINE CHORIONIQUE ENDO 5000 UI/1ML [Suspect]
     Indication: IN VITRO FERTILISATION
     Dosage: 10000 IU, ONCE
     Route: 030
     Dates: start: 20140206, end: 20140206
  2. CETROTIDE [Suspect]
     Indication: IN VITRO FERTILISATION
     Dosage: 1 DF, QD
     Route: 058
     Dates: start: 20140127, end: 20140205
  3. GONAL-F [Suspect]
     Indication: IN VITRO FERTILISATION
     Dosage: 1 DF, QD
     Route: 058
     Dates: start: 20140127, end: 20140205
  4. PROGESTERONE [Suspect]
     Indication: IN VITRO FERTILISATION
     Dosage: UNK
     Dates: start: 201402, end: 20140225

REACTIONS (7)
  - Hepatocellular injury [Recovering/Resolving]
  - Haematocrit increased [Recovered/Resolved]
  - Hyponatraemia [Recovered/Resolved]
  - Ascites [Recovering/Resolving]
  - Dyspnoea [Recovered/Resolved]
  - Vomiting [Recovered/Resolved]
  - Ovarian hyperstimulation syndrome [Recovered/Resolved]
